FAERS Safety Report 20371949 (Version 1)
Quarter: 2022Q1

REPORT INFORMATION
  Report Type: Spontaneous
  Country: IT (occurrence: IT)
  Receive Date: 20220124
  Receipt Date: 20220124
  Transmission Date: 20220423
  Serious: Yes (Hospitalization, Other)
  Sender: FDA-Public Use
  Company Number: IT-Stemline Therapeutics, Inc.-2022ST000004

PATIENT
  Age: 72 Year
  Sex: Male

DRUGS (1)
  1. ELZONRIS [Suspect]
     Active Substance: TAGRAXOFUSP-ERZS
     Indication: Blastic plasmacytoid dendritic cell neoplasia
     Dosage: 5 DOSES OF THE 1ST CYCLE
     Route: 042

REACTIONS (3)
  - Pancytopenia [Unknown]
  - Renal failure [Not Recovered/Not Resolved]
  - Blood lactate dehydrogenase abnormal [Recovered/Resolved]
